FAERS Safety Report 20139913 (Version 2)
Quarter: 2021Q4

REPORT INFORMATION
  Report Type: Spontaneous
  Country: US (occurrence: US)
  Receive Date: 20211202
  Receipt Date: 20211209
  Transmission Date: 20220304
  Serious: Yes (Other)
  Sender: FDA-Public Use
  Company Number: US-PFIZER INC-2019109412

PATIENT
  Age: 64 Year
  Sex: Female
  Weight: 105 kg

DRUGS (6)
  1. DETROL LA [Suspect]
     Active Substance: TOLTERODINE TARTRATE
     Dosage: 2 MG, 1X/DAY
     Route: 048
  2. DETROL LA [Suspect]
     Active Substance: TOLTERODINE TARTRATE
     Dosage: 4 MG, 1X/DAY
     Route: 048
  3. DETROL LA [Suspect]
     Active Substance: TOLTERODINE TARTRATE
     Dosage: UNK (TAKES THE 2 MG, SHE DOES ONE IN THE MORNING AND ONE AT NIGHT I DON^T KNOW WHICH ONE IS WHICH)
  4. DETROL LA [Suspect]
     Active Substance: TOLTERODINE TARTRATE
     Dosage: SIG: 4MG QD (ONCE A DAY) IN AM; 2MG ONCE DAILY IN PM)
     Route: 048
  5. DETROL LA [Suspect]
     Active Substance: TOLTERODINE TARTRATE
     Dosage: 2 MG, DAILY IN THE PM
     Route: 048
  6. DETROL LA [Suspect]
     Active Substance: TOLTERODINE TARTRATE
     Dosage: 4 MG, DAILY IN THE AM
     Route: 048

REACTIONS (3)
  - Breast cancer [Unknown]
  - Cardiac disorder [Unknown]
  - Off label use [Unknown]
